FAERS Safety Report 10524626 (Version 1)
Quarter: 2014Q4

REPORT INFORMATION
  Report Type: Spontaneous
  Country: US (occurrence: None)
  Receive Date: 20141015
  Receipt Date: 20141015
  Transmission Date: 20150528
  Serious: Yes (Disabling)
  Sender: FDA-Public Use
  Company Number: None

PATIENT
  Age: 39 Year
  Sex: Female
  Weight: 46.27 kg

DRUGS (1)
  1. OTEZLA [Suspect]
     Active Substance: APREMILAST
     Indication: PSORIATIC ARTHROPATHY
     Dosage: 2 PILLS DAILY TWICE BY MOUTH
     Route: 048
     Dates: start: 20140522, end: 20140911

REACTIONS (15)
  - Hypopnoea [None]
  - Insomnia [None]
  - Dyspnoea [None]
  - Upper respiratory tract infection [None]
  - Pharyngitis streptococcal [None]
  - Mood altered [None]
  - Nausea [None]
  - Depression [None]
  - Panic attack [None]
  - Headache [None]
  - Heart rate increased [None]
  - Nasopharyngitis [None]
  - Pyrexia [None]
  - Anxiety [None]
  - Respiratory disorder [None]

NARRATIVE: CASE EVENT DATE: 20140911
